FAERS Safety Report 7474941-5 (Version None)
Quarter: 2011Q2

REPORT INFORMATION
  Report Type: 
  Country: None (occurrence: None)
  Receive Date: 20110512
  Receipt Date: 20090930
  Transmission Date: 20111010
  Serious: Yes (Hospitalization, Other)
  Sender: FDA-Public Use
  Company Number: US-BAYER-200934448NA

PATIENT
  Age: 50 Year
  Sex: Female
  Weight: 56.689 kg

DRUGS (28)
  1. ACETYLSALICYLIC ACID SRT [Concomitant]
     Dosage: ONE TABLET DAILY
     Route: 048
  2. HUMALOG [Concomitant]
     Dosage: 1-5 U PRN
  3. EPINEPHRINE [Concomitant]
     Dosage: UNK
     Dates: start: 20040811
  4. MANNITOL [Concomitant]
     Dosage: UNK
     Dates: start: 20040811
  5. HEPARIN [Concomitant]
     Dosage: UNK
     Dates: start: 20040811
  6. MORPHINE SULFATE [Concomitant]
     Dosage: UNK
     Dates: start: 20040811
  7. TRASYLOL [Suspect]
     Indication: CORONARY ARTERY BYPASS
     Dosage: 1 ML TEST DOSE
     Route: 042
     Dates: start: 20040811, end: 20040811
  8. NITROGLYCERIN [Concomitant]
     Dosage: 1 TABLET DAILY
     Route: 048
  9. LANTUS [Concomitant]
     Dosage: 13 U, NIGHTLY
     Route: 058
  10. ETOMIDATE [Concomitant]
     Dosage: UNK
     Dates: start: 20040811
  11. NOREPINEPHRINE BITARTRATE [Concomitant]
     Dosage: UNK
     Dates: start: 20040811
  12. HESPAN IN EXCEL PLASTIC CONTAINER [Concomitant]
     Dosage: UNK
     Dates: start: 20040811
  13. TRASYLOL [Suspect]
     Dosage: 50 ML/ HOUR INFUSION
     Route: 042
     Dates: start: 20040811, end: 20040811
  14. METOPROLOL SUCCINATE [Concomitant]
     Dosage: 25 MG QD
     Route: 048
  15. LISINOPRIL [Concomitant]
     Dosage: ONE TABLET  QD
     Route: 048
  16. LASIX [Concomitant]
     Dosage: 1 TABLET DAILY
     Route: 048
  17. PHENYLEPHRINE HCL [Concomitant]
     Dosage: UNK
     Dates: start: 20040811
  18. LIDOCAINE [Concomitant]
     Dosage: UNK
     Dates: start: 20040811
  19. TRASYLOL [Suspect]
     Dosage: 199 ML LOADING DOSE
     Route: 042
     Dates: start: 20040811, end: 20040811
  20. DOPAMINE HCL [Concomitant]
     Dosage: UNK
     Dates: start: 20040811
  21. RED BLOOD CELLS [Concomitant]
     Dosage: 2 U, UNK
     Route: 042
     Dates: start: 20040811
  22. TRASYLOL [Suspect]
     Dosage: PUMP PRIME (AMOUNT NOT DOCUMENT)
     Route: 042
     Dates: start: 20040811, end: 20040811
  23. ZETIA [Concomitant]
     Dosage: 10 MG QD
     Route: 048
  24. HYDROCHLOROTHIAZIDE [Concomitant]
     Dosage: 25 MG, QD
     Route: 048
  25. PROTAMINE SULFATE [Concomitant]
     Dosage: UNK
     Dates: start: 20040811
  26. VANCOMYCIN [Concomitant]
     Dosage: UNK
     Dates: start: 20040811
  27. MEPERIDINE [Concomitant]
     Dosage: UNK
     Dates: start: 20040811
  28. ANCEF [Concomitant]
     Dosage: UNK
     Dates: start: 20040811

REACTIONS (10)
  - PAIN [None]
  - INJURY [None]
  - RENAL INJURY [None]
  - UNEVALUABLE EVENT [None]
  - FEAR [None]
  - RENAL IMPAIRMENT [None]
  - EMOTIONAL DISTRESS [None]
  - STRESS [None]
  - RENAL FAILURE [None]
  - ANXIETY [None]
